FAERS Safety Report 14307276 (Version 2)
Quarter: 2017Q4

REPORT INFORMATION
  Report Type: Spontaneous
  Country: IT (occurrence: IT)
  Receive Date: 20171220
  Receipt Date: 20171229
  Transmission Date: 20180321
  Serious: Yes (Other)
  Sender: FDA-Public Use
  Company Number: PHHY2017IT188051

PATIENT
  Age: 76 Year
  Sex: Female

DRUGS (2)
  1. NORMAST [Concomitant]
     Indication: PRODUCT USED FOR UNKNOWN INDICATION
     Dosage: 600 OT, QD
     Route: 048
     Dates: start: 20170501, end: 20170907
  2. TEGRETOL [Suspect]
     Active Substance: CARBAMAZEPINE
     Indication: CLONUS
     Dosage: 200 MG, QD
     Route: 048
     Dates: start: 20170501, end: 20170907

REACTIONS (5)
  - Asthenia [Recovered/Resolved]
  - Drug-induced liver injury [Recovered/Resolved]
  - Ocular icterus [Recovered/Resolved]
  - Chromaturia [Recovered/Resolved]
  - Decreased appetite [Recovered/Resolved]

NARRATIVE: CASE EVENT DATE: 20170907
